FAERS Safety Report 10172979 (Version 4)
Quarter: 2014Q3

REPORT INFORMATION
  Report Type: Report from Study
  Country: GB (occurrence: GB)
  Receive Date: 20140515
  Receipt Date: 20140904
  Transmission Date: 20150326
  Serious: Yes (Death, Hospitalization)
  Sender: FDA-Public Use
  Company Number: GB-CELGENEUS-167-21880-14050396

PATIENT
  Age: 78 Year
  Sex: Male
  Weight: 74 kg

DRUGS (7)
  1. REVLIMID [Suspect]
     Active Substance: LENALIDOMIDE
     Indication: PLASMA CELL MYELOMA
     Dosage: 10 MILLIGRAM
     Route: 048
     Dates: start: 20130228
  2. THALIDOMIDE [Suspect]
     Active Substance: THALIDOMIDE
     Indication: PLASMA CELL MYELOMA
     Dosage: 50 MILLIGRAM
     Route: 048
     Dates: start: 20120322, end: 20120904
  3. REVLIMID [Suspect]
     Active Substance: LENALIDOMIDE
     Dosage: 5 MILLIGRAM
     Route: 048
     Dates: start: 20140311, end: 20140422
  4. VORINOSTAT [Suspect]
     Active Substance: VORINOSTAT
     Indication: PLASMA CELL MYELOMA
     Dosage: 300 MILLIGRAM
     Route: 048
     Dates: start: 20130228, end: 20140422
  5. DEXAMETHASONE. [Suspect]
     Active Substance: DEXAMETHASONE
     Indication: PLASMA CELL MYELOMA
     Dosage: 20 MILLIGRAM
     Route: 048
     Dates: start: 20120322, end: 20130112
  6. CYCLOPHOSPHAMIDE. [Suspect]
     Active Substance: CYCLOPHOSPHAMIDE
     Indication: PLASMA CELL MYELOMA
     Dosage: 71.4286 MILLIGRAM
     Route: 048
     Dates: start: 20120322, end: 20130114
  7. BORTEZOMIB [Suspect]
     Active Substance: BORTEZOMIB
     Indication: PLASMA CELL MYELOMA
     Dosage: 1.3 MILLIGRAM/SQ. METER
     Route: 041
     Dates: start: 20120918, end: 20130110

REACTIONS (1)
  - Colon cancer metastatic [Fatal]

NARRATIVE: CASE EVENT DATE: 20140414
